FAERS Safety Report 9378086 (Version 4)
Quarter: 2013Q4

REPORT INFORMATION
  Report Type: Spontaneous
  Country: US (occurrence: US)
  Receive Date: 20130701
  Receipt Date: 20131125
  Transmission Date: 20140711
  Serious: Yes (Hospitalization)
  Sender: FDA-Public Use
  Company Number: US-GLAXOSMITHKLINE-A1029005A

PATIENT
  Age: 44 Year
  Sex: Female

DRUGS (2)
  1. FLOLAN [Suspect]
     Indication: COR PULMONALE CHRONIC
     Route: 042
     Dates: start: 20090523
  2. REVATIO [Concomitant]

REACTIONS (3)
  - Pneumonia [Unknown]
  - Investigation [Unknown]
  - Uterine leiomyoma embolisation [Recovering/Resolving]
